FAERS Safety Report 8077475-2 (Version None)
Quarter: 2012Q1

REPORT INFORMATION
  Report Type: 
  Country: None (occurrence: None)
  Receive Date: 20120127
  Receipt Date: 20120126
  Transmission Date: 20120608
  Serious: Yes (Other)
  Sender: FDA-Public Use
  Company Number: US-BAYER-2012-008307

PATIENT
  Age: 64 Year
  Sex: Female

DRUGS (5)
  1. NEURONTIN [Concomitant]
  2. ALEVE (CAPLET) [Concomitant]
  3. INTERFERON BETA-1B [Suspect]
     Indication: MULTIPLE SCLEROSIS
     Dosage: UNK
     Dates: start: 20100613, end: 20100728
  4. INTERFERON BETA-1B [Suspect]
     Dosage: UNK
     Dates: start: 20100901, end: 20110801
  5. INTERFERON BETA-1B [Suspect]
     Dosage: 8 MIU, QOD
     Dates: start: 20110911

REACTIONS (8)
  - INTERVERTEBRAL DISC PROTRUSION [None]
  - NERVE COMPRESSION [None]
  - INFLUENZA LIKE ILLNESS [None]
  - BLOOD POTASSIUM DECREASED [None]
  - PYREXIA [None]
  - FEELING COLD [None]
  - INJECTION SITE ERYTHEMA [None]
  - PAIN [None]
